FAERS Safety Report 10038643 (Version 1)
Quarter: 2014Q1

REPORT INFORMATION
  Report Type: Spontaneous
  Country: US (occurrence: None)
  Receive Date: 20140306
  Receipt Date: 20140306
  Transmission Date: 20141002
  Serious: Yes (Hospitalization)
  Sender: FDA-Public Use
  Company Number: 163-21880-12093316

PATIENT
  Age: 67 Year
  Sex: Male
  Weight: 85.28 kg

DRUGS (20)
  1. REVLIMID (LENALIDOMIDE) (25 MILLIGRAM, CAPSULES) [Suspect]
     Indication: PLASMA CELL MYELOMA
     Dosage: 21 IN 21 D
     Route: 048
     Dates: start: 201203, end: 201204
  2. MAG-OXIDE (MAGNESIUM OXIDE) [Concomitant]
  3. PLAVIX (CLOPIDOGREL SULFATE) [Concomitant]
  4. PROTONIX (PANTOPRAZOLE SODIUM) [Concomitant]
  5. LASIX (FUROSEMIDE) [Concomitant]
  6. MEGACE (MEGESTROL ACETATE) [Concomitant]
  7. COREG (CARVEDILOL) [Concomitant]
  8. KCL (POTASSIUM CHLORIDE) [Concomitant]
  9. CRESTOR (ROSUVASTATIN) [Concomitant]
  10. ASPIRIN (ACETYLSALICYLIC ACID) [Concomitant]
  11. DEXAMETHASONE [Concomitant]
  12. FUROSEMIDE [Concomitant]
  13. KLOR-CON (POTASSIUM CHLORIDE) [Concomitant]
  14. LISINOPRIL [Concomitant]
  15. PANTOPRAZOLE [Concomitant]
  16. PERCOCET (OXYCOCET) [Concomitant]
  17. RANEXA (RANOLAZINE) [Concomitant]
  18. SPIRONOLACTONE [Concomitant]
  19. SUCRALFATE [Concomitant]
  20. MIRALAX (MACROGOL) [Concomitant]

REACTIONS (2)
  - Rectal haemorrhage [None]
  - Muscle spasms [None]
